FAERS Safety Report 7088138-4 (Version None)
Quarter: 2010Q4

REPORT INFORMATION
  Report Type: 
  Country: None (occurrence: None)
  Receive Date: 20101108
  Receipt Date: 20101029
  Transmission Date: 20110411
  Serious: No
  Sender: FDA-Public Use
  Company Number: US-B.I. PHARMACEUTICALS,INC./RIDGEFIELD-2010-BP-12243BP

PATIENT
  Sex: Male

DRUGS (8)
  1. SPIRIVA [Suspect]
     Indication: CHRONIC OBSTRUCTIVE PULMONARY DISEASE
     Dosage: 18 MCG
     Route: 055
     Dates: start: 20100801
  2. SPIRIVA [Suspect]
     Indication: ASTHMA
  3. ADVAIR DISKUS 100/50 [Concomitant]
     Indication: CHRONIC OBSTRUCTIVE PULMONARY DISEASE
     Route: 055
  4. ADVAIR DISKUS 100/50 [Concomitant]
     Indication: ASTHMA
  5. ALBUTEROL [Concomitant]
     Indication: CHRONIC OBSTRUCTIVE PULMONARY DISEASE
     Route: 055
  6. ALBUTEROL [Concomitant]
     Indication: ASTHMA
  7. ALBUTEROL [Concomitant]
     Indication: CHRONIC OBSTRUCTIVE PULMONARY DISEASE
     Dosage: 4 MG
     Route: 048
  8. ALBUTEROL [Concomitant]
     Indication: ASTHMA

REACTIONS (1)
  - DRUG INEFFECTIVE [None]
